FAERS Safety Report 22323337 (Version 1)
Quarter: 2023Q2

REPORT INFORMATION
  Report Type: Spontaneous
  Country: US (occurrence: US)
  Receive Date: 20230516
  Receipt Date: 20230516
  Transmission Date: 20230722
  Serious: No
  Sender: FDA-Public Use
  Company Number: US-LEADINGPHARMA-US-2023LEASPO00117

PATIENT
  Age: 79 Year
  Sex: Male
  Weight: 83.9 kg

DRUGS (2)
  1. LORAZEPAM [Suspect]
     Active Substance: LORAZEPAM
     Indication: Anxiety
     Route: 048
     Dates: start: 20230411
  2. LORAZEPAM [Suspect]
     Active Substance: LORAZEPAM
     Route: 048
     Dates: start: 20230501

REACTIONS (2)
  - Pollakiuria [Not Recovered/Not Resolved]
  - Drug ineffective [Unknown]

NARRATIVE: CASE EVENT DATE: 20230411
